FAERS Safety Report 8004436-1 (Version None)
Quarter: 2011Q4

REPORT INFORMATION
  Report Type: 
  Country: None (occurrence: None)
  Receive Date: 20111221
  Receipt Date: 20111221
  Transmission Date: 20120403
  Serious: No
  Sender: FDA-Public Use
  Company Number: None

PATIENT
  Age: 70 Year
  Sex: Female
  Weight: 74.8435 kg

DRUGS (1)
  1. TIROSINT [Suspect]
     Indication: HYPOTHYROIDISM
     Dosage: 1 CAPSULE/DAY EVERY A.M. MOUTH ON EMPTY STOMACH
     Route: 048
     Dates: start: 20111030

REACTIONS (5)
  - DIZZINESS [None]
  - ASTHENIA [None]
  - DEREALISATION [None]
  - HALLUCINATION, VISUAL [None]
  - VISION BLURRED [None]
